FAERS Safety Report 14539554 (Version 2)
Quarter: 2018Q1

REPORT INFORMATION
  Report Type: Spontaneous
  Country: CZ (occurrence: CZ)
  Receive Date: 20180216
  Receipt Date: 20180218
  Transmission Date: 20180509
  Serious: Yes (Death, Other)
  Sender: FDA-Public Use
  Company Number: PHHY2018CZ025851

PATIENT
  Age: 47 Year
  Sex: Male
  Weight: 86 kg

DRUGS (2)
  1. PAZOPANIB [Suspect]
     Active Substance: PAZOPANIB
     Indication: LUNG DISORDER
     Dosage: 800 MG, QD (2X400MG IN MORINING)
     Route: 065
     Dates: start: 20130905
  2. PAZOPANIB [Suspect]
     Active Substance: PAZOPANIB
     Dosage: UNK
     Route: 065
     Dates: start: 20150403, end: 20160617

REACTIONS (9)
  - Metastases to lung [Fatal]
  - Diarrhoea [Unknown]
  - Metastases to central nervous system [Unknown]
  - Paraesthesia [Unknown]
  - Oedema [Unknown]
  - Seizure [Unknown]
  - Weight fluctuation [Unknown]
  - Product use in unapproved indication [Unknown]
  - Blood pressure fluctuation [Unknown]

NARRATIVE: CASE EVENT DATE: 20160617
